FAERS Safety Report 5406167-0 (Version None)
Quarter: 2007Q3

REPORT INFORMATION
  Report Type: 
  Country: None (occurrence: None)
  Receive Date: 20070802
  Receipt Date: 20070802
  Transmission Date: 20080115
  Serious: Yes (Life-Threatening)
  Sender: FDA-Public Use
  Company Number: None

PATIENT
  Age: 39 Year
  Sex: Male

DRUGS (1)
  1. MORPHINE SULFATE [Suspect]
     Indication: POSTOPERATIVE ANALGESIA
     Dosage: PCA    PCA   IV
     Route: 042
     Dates: start: 20070512, end: 20070512

REACTIONS (1)
  - ANAPHYLACTIC REACTION [None]
